FAERS Safety Report 11765073 (Version 1)
Quarter: 2015Q4

REPORT INFORMATION
  Report Type: Spontaneous
  Country: US (occurrence: US)
  Receive Date: 20151120
  Receipt Date: 20151120
  Transmission Date: 20160304
  Serious: No
  Sender: FDA-Public Use
  Company Number: US-ELI_LILLY_AND_COMPANY-US201311000086

PATIENT
  Sex: Female

DRUGS (1)
  1. FORTEO [Suspect]
     Active Substance: TERIPARATIDE
     Indication: OSTEOPOROSIS
     Dosage: UNK
     Route: 065
     Dates: start: 201112

REACTIONS (4)
  - Pollakiuria [Not Recovered/Not Resolved]
  - Calculus bladder [Recovered/Resolved]
  - Dysuria [Unknown]
  - Nephrolithiasis [Recovered/Resolved]
